FAERS Safety Report 12469386 (Version 1)
Quarter: 2016Q2

REPORT INFORMATION
  Report Type: Spontaneous
  Country: JP (occurrence: JP)
  Receive Date: 20160615
  Receipt Date: 20160615
  Transmission Date: 20160815
  Serious: Yes (Other)
  Sender: FDA-Public Use
  Company Number: JP-JNJFOC-20160610076

PATIENT

DRUGS (5)
  1. CYCLOSPORIN A [Concomitant]
     Active Substance: CYCLOSPORINE
     Route: 065
  2. SOVRIAD [Suspect]
     Active Substance: SIMEPREVIR
     Indication: HEPATITIS C
     Dosage: FOR 12 WEEKS
     Route: 048
  3. RIBAVIRIN. [Concomitant]
     Active Substance: RIBAVIRIN
     Indication: HEPATITIS C
     Dosage: FOR 24/36/48 WEEKS IN PATIENTS AT 600 MG/ 800 MG/ 1000 MG ACCORDING TO BODY WEIGHT
     Route: 048
  4. TACROLIMUS. [Concomitant]
     Active Substance: TACROLIMUS
     Route: 065
  5. PEGINTERFERON ALFA-2A [Concomitant]
     Active Substance: PEGINTERFERON ALFA-2A
     Indication: HEPATITIS C
     Dosage: FOR 24 WEEKS IN FEW PATIENTS, FOR 36 WEEKS IN FEW PATIENTS AND FOR 48 WEEKS IN FEW PATIENTS
     Route: 058

REACTIONS (5)
  - Off label use [Unknown]
  - Condition aggravated [Unknown]
  - Anaemia [Unknown]
  - Remission not achieved [Unknown]
  - Product use issue [Unknown]
